FAERS Safety Report 11939404 (Version 2)
Quarter: 2016Q1

REPORT INFORMATION
  Report Type: Spontaneous
  Country: US (occurrence: US)
  Receive Date: 20160122
  Receipt Date: 20160226
  Transmission Date: 20160526
  Serious: Yes (Hospitalization, Other)
  Sender: FDA-Public Use
  Company Number: US-TEVA-626906USA

PATIENT
  Age: 58 Year
  Sex: Female

DRUGS (10)
  1. COPAXONE [Suspect]
     Active Substance: GLATIRAMER ACETATE
     Route: 058
     Dates: start: 20090721
  2. OYST-CAL [Concomitant]
     Route: 065
  3. OXYCODONE [Suspect]
     Active Substance: OXYCODONE
  4. TRAZODONE [Concomitant]
     Active Substance: TRAZODONE HYDROCHLORIDE
  5. ASPIRIN. [Concomitant]
     Active Substance: ASPIRIN
     Route: 065
  6. DEPAKOTE [Suspect]
     Active Substance: DIVALPROEX SODIUM
  7. COPAXONE [Suspect]
     Active Substance: GLATIRAMER ACETATE
     Indication: MULTIPLE SCLEROSIS
     Route: 058
  8. KLONOPIN [Suspect]
     Active Substance: CLONAZEPAM
  9. NICOTINE. [Concomitant]
     Active Substance: NICOTINE
     Route: 065
  10. MAGNESIUM [Concomitant]
     Active Substance: MAGNESIUM
     Route: 065

REACTIONS (3)
  - Adverse event [Unknown]
  - Coma [Unknown]
  - Memory impairment [Unknown]

NARRATIVE: CASE EVENT DATE: 20160115
